FAERS Safety Report 8833697 (Version 1)
Quarter: 2012Q4

REPORT INFORMATION
  Report Type: 
  Country: US (occurrence: US)
  Receive Date: 20121010
  Receipt Date: 20121010
  Transmission Date: 20130627
  Serious: Yes (Hospitalization)
  Sender: FDA-Public Use
  Company Number: US-ROCHE-1132029

PATIENT
  Sex: Female

DRUGS (11)
  1. RITUXAN [Suspect]
     Indication: NON-HODGKIN^S LYMPHOMA
     Route: 065
     Dates: start: 19990622
  2. DEXEDRINE [Concomitant]
     Indication: NARCOLEPSY
     Route: 065
  3. PREMARIN [Concomitant]
     Route: 065
  4. SYNTHROID [Concomitant]
     Route: 065
  5. BECONASE [Concomitant]
     Dosage: 2 puffs
     Route: 065
  6. VITAMIN E [Concomitant]
     Route: 065
  7. ZOLOFT [Concomitant]
     Dosage: one-half pill per day
     Route: 065
  8. ALBUTEROL [Concomitant]
     Route: 065
  9. DECADRON [Concomitant]
     Route: 042
  10. TYLENOL [Concomitant]
  11. BENADRYL [Concomitant]

REACTIONS (9)
  - Bronchitis [Recovering/Resolving]
  - Asthma [Recovering/Resolving]
  - Lung infection [Unknown]
  - Pulmonary congestion [Unknown]
  - Disease progression [Unknown]
  - Night sweats [Unknown]
  - Oedema peripheral [Recovered/Resolved]
  - Decreased appetite [Recovering/Resolving]
  - Fatigue [Recovering/Resolving]
